FAERS Safety Report 16270326 (Version 1)
Quarter: 2019Q2

REPORT INFORMATION
  Report Type: Spontaneous
  Country: US (occurrence: US)
  Receive Date: 20190329
  Receipt Date: 20190329
  Transmission Date: 20190711
  Serious: No
  Sender: FDA-Public Use
  Company Number: None

PATIENT
  Age: 47 Year
  Sex: Female

DRUGS (1)
  1. IBRANCE [Suspect]
     Active Substance: PALBOCICLIB
     Indication: BREAST CANCER
     Dosage: 25MG DAILY X 21 ...   ORAL
     Route: 048
     Dates: start: 20190301

REACTIONS (2)
  - Myalgia [None]
  - Gait disturbance [None]

NARRATIVE: CASE EVENT DATE: 201903
